FAERS Safety Report 6113759-2 (Version None)
Quarter: 2009Q1

REPORT INFORMATION
  Report Type: 
  Country: None (occurrence: None)
  Receive Date: 20090312
  Receipt Date: 20090304
  Transmission Date: 20090719
  Serious: Yes (Other)
  Sender: FDA-Public Use
  Company Number: US-BAXTER-2009BH003682

PATIENT

DRUGS (2)
  1. DURAMORPH PF [Suspect]
     Indication: DRUG USE FOR UNKNOWN INDICATION
     Route: 037
     Dates: start: 20050818, end: 20050818
  2. UNSPECIFIED ANESTHETIC [Suspect]
     Indication: ANAESTHESIA
     Route: 065
     Dates: start: 20050818, end: 20050818

REACTIONS (3)
  - HYPOAESTHESIA [None]
  - OVERDOSE [None]
  - WRONG DRUG ADMINISTERED [None]
